FAERS Safety Report 9540258 (Version 1)
Quarter: 2013Q3

REPORT INFORMATION
  Report Type: Spontaneous
  Country: GB (occurrence: None)
  Receive Date: 20130917
  Receipt Date: 20130917
  Transmission Date: 20140515
  Serious: Yes (Other)
  Sender: FDA-Public Use
  Company Number: AUR-APL-2013-07563

PATIENT
  Age: 58 Year
  Sex: Male
  Weight: 104 kg

DRUGS (2)
  1. AMLODIPINE [Suspect]
     Indication: PRODUCT USED FOR UNKNOWN INDICATION
  2. RAMIPRIL (RAMIPRIL) [Concomitant]

REACTIONS (1)
  - Erectile dysfunction [None]
